FAERS Safety Report 21925787 (Version 2)
Quarter: 2023Q1

REPORT INFORMATION
  Report Type: Spontaneous
  Country: US (occurrence: None)
  Receive Date: 20230130
  Receipt Date: 20230203
  Transmission Date: 20230417
  Serious: No
  Sender: FDA-Public Use
  Company Number: US-Eisai Medical Research-EC-2022-130321

PATIENT
  Sex: Female
  Weight: 99.7 kg

DRUGS (7)
  1. LENVIMA [Suspect]
     Active Substance: LENVATINIB
     Indication: Endometrial cancer
     Route: 048
     Dates: start: 20210826
  2. KEYTRUDA [Suspect]
     Active Substance: PEMBROLIZUMAB
     Indication: Endometrial cancer
     Dosage: FREQUENCY UNKNOWN
     Route: 041
     Dates: start: 20210826
  3. LISINOPRIL [Concomitant]
     Active Substance: LISINOPRIL
  4. VITAMIN D [Concomitant]
     Active Substance: VITAMIN D NOS
  5. CALCIUM [Concomitant]
     Active Substance: CALCIUM
  6. FISH OIL [Concomitant]
     Active Substance: FISH OIL
  7. ALOE VERA LEAF [Concomitant]
     Active Substance: ALOE VERA LEAF

REACTIONS (2)
  - Drug ineffective [Unknown]
  - Malignant neoplasm progression [Unknown]
